FAERS Safety Report 8902598 (Version 2)
Quarter: 2012Q4

REPORT INFORMATION
  Report Type: Report from Study
  Country: DE (occurrence: DE)
  Receive Date: 20121112
  Receipt Date: 20121126
  Transmission Date: 20130627
  Serious: Yes (Hospitalization, Disabling, Other)
  Sender: FDA-Public Use
  Company Number: DE-ROCHE-1154047

PATIENT
  Age: 44 Year
  Sex: Male
  Weight: 89 kg

DRUGS (19)
  1. BEVACIZUMAB [Suspect]
     Indication: BRAIN NEOPLASM MALIGNANT
     Route: 042
     Dates: start: 20110817
  2. IRINOTECAN [Suspect]
     Indication: BRAIN NEOPLASM MALIGNANT
     Route: 042
     Dates: start: 20111013
  3. DEXAMETHASON [Concomitant]
     Route: 065
     Dates: start: 20110816, end: 20110929
  4. LEVETIRACETAM [Concomitant]
     Dosage: dose:1000/2
     Route: 065
  5. LEVETIRACETAM [Concomitant]
     Route: 065
  6. PANTOPRAZOL [Concomitant]
  7. LASIX [Concomitant]
     Route: 065
     Dates: start: 201107
  8. TALVOSILEN FORTE [Concomitant]
     Dosage: dose:2120/4
     Route: 065
     Dates: start: 201107
  9. FORTECORTIN [Concomitant]
     Route: 065
     Dates: start: 201107, end: 20110721
  10. FORTECORTIN [Concomitant]
     Route: 065
     Dates: start: 20110721, end: 20110725
  11. FORTECORTIN [Concomitant]
     Route: 065
     Dates: start: 20110725, end: 20110729
  12. DEXAMETASON [Concomitant]
     Route: 065
     Dates: start: 20110620, end: 201107
  13. LORAZEPAM [Concomitant]
     Route: 065
     Dates: start: 20110620, end: 201107
  14. NEXIUM [Concomitant]
     Dosage: dose:40/1
     Route: 065
     Dates: start: 20120411
  15. MUSCORIL [Concomitant]
     Dosage: dose:50/1
     Route: 065
     Dates: start: 20120411, end: 20120425
  16. IBUPROFEN [Concomitant]
     Dosage: dose:1200/3
     Route: 065
     Dates: start: 20120411, end: 20120425
  17. CEFPODOXIME [Concomitant]
     Route: 065
     Dates: start: 20121016, end: 20121023
  18. GRANISETRON [Concomitant]
     Route: 065
     Dates: start: 20111109, end: 20111109
  19. KEVATRIL [Concomitant]
     Dosage: form:ampule
     Route: 065
     Dates: start: 20111026, end: 20111026

REACTIONS (2)
  - Convulsion [Recovering/Resolving]
  - Cerebral infarction [Not Recovered/Not Resolved]
